FAERS Safety Report 7405663-4 (Version None)
Quarter: 2011Q2

REPORT INFORMATION
  Report Type: 
  Country: None (occurrence: None)
  Receive Date: 20110411
  Receipt Date: 20110406
  Transmission Date: 20111010
  Serious: Yes (Hospitalization)
  Sender: FDA-Public Use
  Company Number: PHHO2011US02979

PATIENT
  Sex: Female
  Weight: 108.91 kg

DRUGS (4)
  1. HYDROCHLOROTHIAZIDE [Concomitant]
     Indication: HYPERTENSION
     Dosage: 25 MG, QD
     Route: 048
     Dates: start: 20110125
  2. TASIGNA [Suspect]
     Indication: CHRONIC MYELOID LEUKAEMIA
     Dosage: 300 MG, BID
     Route: 048
     Dates: start: 20080604, end: 20110211
  3. NORVASC [Concomitant]
     Indication: HYPERTENSION
     Dosage: 5 MG, QD
     Route: 048
     Dates: start: 20081121
  4. COZAAR [Concomitant]
     Indication: HYPERTENSION
     Dosage: 75 MG, QD
     Route: 048
     Dates: start: 20060101

REACTIONS (15)
  - CHEST DISCOMFORT [None]
  - BACK PAIN [None]
  - TROPONIN I INCREASED [None]
  - OBESITY [None]
  - CARDIOMEGALY [None]
  - HYPERTENSION [None]
  - DYSLIPIDAEMIA [None]
  - QRS AXIS ABNORMAL [None]
  - LEFT VENTRICULAR HYPERTROPHY [None]
  - CORONARY ARTERY DISEASE [None]
  - AORTIC CALCIFICATION [None]
  - CHEST PAIN [None]
  - CONCOMITANT DISEASE PROGRESSION [None]
  - MYOCARDIAL INFARCTION [None]
  - ELECTROCARDIOGRAM REPOLARISATION ABNORMALITY [None]
